FAERS Safety Report 6479894-4 (Version None)
Quarter: 2009Q4

REPORT INFORMATION
  Report Type: 
  Country: None (occurrence: None)
  Receive Date: 20091208
  Receipt Date: 20091113
  Transmission Date: 20100525
  Serious: Yes (Other)
  Sender: FDA-Public Use
  Company Number: US-SANOFI-AVENTIS-200920493GDDC

PATIENT
  Age: 63 Year
  Sex: Female

DRUGS (3)
  1. DOCETAXEL [Suspect]
     Dosage: DOSE UNIT: 75 MG
     Route: 042
     Dates: start: 20020807, end: 20021119
  2. CARBOPLATIN [Suspect]
     Route: 042
     Dates: start: 20020807, end: 20021119
  3. HERCEPTIN [Suspect]
     Route: 042
     Dates: start: 20020807, end: 20021119

REACTIONS (6)
  - ANAEMIA [None]
  - FATIGUE [None]
  - LABORATORY TEST ABNORMAL [None]
  - MYELODYSPLASTIC SYNDROME [None]
  - PANCYTOPENIA [None]
  - THROMBOCYTOPENIA [None]
